FAERS Safety Report 16485272 (Version 1)
Quarter: 2019Q2

REPORT INFORMATION
  Report Type: Spontaneous
  Country: JP (occurrence: JP)
  Receive Date: 20190627
  Receipt Date: 20190627
  Transmission Date: 20190711
  Serious: Yes (Hospitalization)
  Sender: FDA-Public Use
  Company Number: JP-DSJP-DSJ-2019-123649AA

PATIENT

DRUGS (2)
  1. OLMETEC OD [Suspect]
     Active Substance: OLMESARTAN MEDOXOMIL
     Dosage: 20MG/DAY
     Route: 048
  2. OLMETEC OD [Suspect]
     Active Substance: OLMESARTAN MEDOXOMIL
     Indication: HYPERTENSION
     Dosage: 40MG/DAY
     Route: 048

REACTIONS (3)
  - Vomiting [Recovered/Resolved]
  - Enterocolitis [Not Recovered/Not Resolved]
  - Diarrhoea [Recovered/Resolved]
